FAERS Safety Report 4414593-1 (Version None)
Quarter: 2004Q3

REPORT INFORMATION
  Report Type: 
  Country: None (occurrence: None)
  Receive Date: 20040729
  Receipt Date: 20040713
  Transmission Date: 20050211
  Serious: Yes (Death, Life-Threatening, Hospitalization)
  Sender: FDA-Public Use
  Company Number: 2004-06676

PATIENT
  Age: 52 Year
  Sex: Male
  Weight: 50 kg

DRUGS (5)
  1. VIREAD [Suspect]
     Indication: HIV INFECTION
     Dosage: 300 MG, ONCE A DAY, ORAL
     Route: 048
     Dates: start: 20031215, end: 20040108
  2. VIREAD [Suspect]
     Indication: HIV INFECTION
     Dosage: 300 MG, ONCE A DAY, ORAL
     Route: 048
     Dates: start: 20020830
  3. KALETRA [Concomitant]
  4. ZIAGEN [Concomitant]
  5. LOPERAMIDE HCL [Concomitant]

REACTIONS (10)
  - ACIDOSIS [None]
  - AZOTAEMIA [None]
  - BLOOD POTASSIUM DECREASED [None]
  - BLOOD PRESSURE DECREASED [None]
  - DIALYSIS [None]
  - DIARRHOEA [None]
  - PULMONARY OEDEMA [None]
  - RENAL FAILURE ACUTE [None]
  - RENAL TUBULAR ACIDOSIS [None]
  - VIRAL LOAD DECREASED [None]
